FAERS Safety Report 13587823 (Version 1)
Quarter: 2017Q2

REPORT INFORMATION
  Report Type: Spontaneous
  Country: US (occurrence: US)
  Receive Date: 20170527
  Receipt Date: 20170527
  Transmission Date: 20170830
  Serious: No
  Sender: FDA-Public Use
  Company Number: US-ASTRAZENECA-2017SE55777

PATIENT
  Sex: Male
  Weight: 77.1 kg

DRUGS (1)
  1. ALVESCO [Suspect]
     Active Substance: CICLESONIDE
     Indication: CHRONIC OBSTRUCTIVE PULMONARY DISEASE
     Dosage: 160 UG ONE PUFF BID/INH
     Route: 055
     Dates: start: 20170506

REACTIONS (5)
  - Dizziness [Unknown]
  - Fatigue [Unknown]
  - Wheezing [Unknown]
  - Chest discomfort [Unknown]
  - Eye disorder [Unknown]
